FAERS Safety Report 8062927-1 (Version None)
Quarter: 2012Q1

REPORT INFORMATION
  Report Type: 
  Country: None (occurrence: None)
  Receive Date: 20120123
  Receipt Date: 20120123
  Transmission Date: 20120608
  Serious: Yes (Other)
  Sender: FDA-Public Use
  Company Number: None

PATIENT
  Age: 49 Year
  Sex: Female
  Weight: 46.72 kg

DRUGS (3)
  1. CYMBALTA [Suspect]
     Indication: FIBROMYALGIA
     Dosage: ONE CAPSULE
     Route: 048
     Dates: start: 20111002, end: 20120112
  2. CYMBALTA [Suspect]
     Indication: CARPAL TUNNEL SYNDROME
     Dosage: ONE CAPSULE
     Route: 048
     Dates: start: 20111002, end: 20120112
  3. CYMBALTA [Suspect]
     Indication: OSTEOARTHRITIS
     Dosage: ONE CAPSULE
     Route: 048
     Dates: start: 20111002, end: 20120112

REACTIONS (8)
  - DRUG WITHDRAWAL SYNDROME [None]
  - HYPERHIDROSIS [None]
  - BOWEL MOVEMENT IRREGULARITY [None]
  - SUICIDAL IDEATION [None]
  - INSOMNIA [None]
  - MIGRAINE [None]
  - DIZZINESS [None]
  - ABNORMAL DREAMS [None]
